FAERS Safety Report 7630173-9 (Version None)
Quarter: 2011Q3

REPORT INFORMATION
  Report Type: 
  Country: None (occurrence: None)
  Receive Date: 20110722
  Receipt Date: 20110713
  Transmission Date: 20111222
  Serious: Yes (Other)
  Sender: FDA-Public Use
  Company Number: PHEH2009US07545

PATIENT
  Sex: Male

DRUGS (13)
  1. PAXIL [Concomitant]
  2. ZOMETA [Suspect]
  3. AMIODARONE HCL [Concomitant]
  4. LISINOPRIL [Concomitant]
  5. COREG [Concomitant]
  6. COUMADIN [Concomitant]
  7. FUROSEMIDE [Concomitant]
  8. METFORMIN HCL [Concomitant]
  9. AVANDIA [Concomitant]
  10. ENALAPRIL MALEATE [Concomitant]
  11. VICODIN [Concomitant]
  12. AREDIA [Suspect]
  13. ATACAND [Concomitant]

REACTIONS (26)
  - OSTEONECROSIS OF JAW [None]
  - TACHYCARDIA [None]
  - DISABILITY [None]
  - TOOTH ABSCESS [None]
  - DIABETES MELLITUS [None]
  - ATRIAL FIBRILLATION [None]
  - VOMITING [None]
  - NAUSEA [None]
  - ANXIETY [None]
  - TENDERNESS [None]
  - HAEMORRHAGE [None]
  - CARDIAC FAILURE CONGESTIVE [None]
  - CARDIOMYOPATHY [None]
  - VISION BLURRED [None]
  - ATRIAL FLUTTER [None]
  - PROSTATE CANCER METASTATIC [None]
  - HYPERTENSION [None]
  - EPISTAXIS [None]
  - INJURY [None]
  - ANHEDONIA [None]
  - GINGIVAL SWELLING [None]
  - CATARACT [None]
  - SKIN DISORDER [None]
  - PAIN [None]
  - OBESITY [None]
  - TINNITUS [None]
